FAERS Safety Report 23127184 (Version 1)
Quarter: 2023Q4

REPORT INFORMATION
  Report Type: Report from Study
  Country: US (occurrence: US)
  Receive Date: 20231030
  Receipt Date: 20231030
  Transmission Date: 20240109
  Serious: Yes (Other)
  Sender: FDA-Public Use
  Company Number: US-CHIESI-2023CHF05606

PATIENT
  Sex: Female
  Weight: 43.3 kg

DRUGS (8)
  1. KENGREAL [Suspect]
     Active Substance: CANGRELOR
     Indication: Product used for unknown indication
     Dosage: 30 MICROGRAM/KILOGRAM
     Route: 042
     Dates: start: 20230906, end: 20230906
  2. KENGREAL [Suspect]
     Active Substance: CANGRELOR
     Dosage: UNK
     Route: 042
     Dates: start: 20230906, end: 20230906
  3. KENGREAL [Suspect]
     Active Substance: CANGRELOR
     Dosage: UNK
     Route: 042
     Dates: start: 20230906, end: 20230906
  4. ASPIRIN [Concomitant]
     Active Substance: ASPIRIN
     Indication: Product used for unknown indication
     Dosage: UNK
  5. HYDROCODONE [Concomitant]
     Active Substance: HYDROCODONE
     Indication: Product used for unknown indication
     Dosage: UNK
  6. TICAGRELOR [Concomitant]
     Active Substance: TICAGRELOR
     Indication: Antiplatelet therapy
     Dosage: 180 MILLIGRAM, QD
     Dates: start: 20230906
  7. TICAGRELOR [Concomitant]
     Active Substance: TICAGRELOR
     Indication: Anticoagulant therapy
     Dosage: 90 MILLIGRAM, BID
     Dates: start: 20230906
  8. FENTANYL [Concomitant]
     Active Substance: FENTANYL\FENTANYL CITRATE
     Indication: Product used for unknown indication
     Dosage: UNK
     Dates: start: 20230906

REACTIONS (8)
  - Hypertensive emergency [Unknown]
  - Off label use [Recovered/Resolved]
  - Off label use [Recovered/Resolved]
  - Off label use [Recovered/Resolved]
  - Off label use [Recovered/Resolved]
  - Off label use [Recovered/Resolved]
  - Off label use [Recovered/Resolved]
  - Off label use [Recovered/Resolved]

NARRATIVE: CASE EVENT DATE: 20230101
